FAERS Safety Report 7183414-9 (Version None)
Quarter: 2010Q4

REPORT INFORMATION
  Report Type: 
  Country: None (occurrence: None)
  Receive Date: 20101222
  Receipt Date: 20101216
  Transmission Date: 20110411
  Serious: Yes (Other)
  Sender: FDA-Public Use
  Company Number: US-AMGEN-USASP2010009686

PATIENT

DRUGS (2)
  1. ENBREL [Suspect]
     Indication: RHEUMATOID ARTHRITIS
     Dates: start: 20060301
  2. METHOTREXATE (TREXALL) [Concomitant]

REACTIONS (8)
  - BURNING SENSATION [None]
  - DEPRESSION [None]
  - INCREASED APPETITE [None]
  - INTERSTITIAL LUNG DISEASE [None]
  - MOOD ALTERED [None]
  - PLEURAL EFFUSION [None]
  - RHEUMATOID ARTHRITIS [None]
  - WEIGHT INCREASED [None]
